FAERS Safety Report 20751669 (Version 1)
Quarter: 2022Q2

REPORT INFORMATION
  Report Type: Spontaneous
  Country: BR (occurrence: BR)
  Receive Date: 20220426
  Receipt Date: 20220426
  Transmission Date: 20220721
  Serious: Yes (Other)
  Sender: FDA-Public Use
  Company Number: BR-NOVARTISPH-NVSC2022BR094415

PATIENT
  Sex: Male

DRUGS (1)
  1. NEVANAC [Suspect]
     Active Substance: NEPAFENAC
     Indication: Eye disorder
     Dosage: 1 MG/ML (STOPPED AFTER 1 WEEK)
     Route: 065

REACTIONS (8)
  - Optic neuritis [Unknown]
  - Hyperaesthesia [Not Recovered/Not Resolved]
  - Gait disturbance [Unknown]
  - Peripheral sensory neuropathy [Unknown]
  - Vision blurred [Unknown]
  - Vitamin B12 deficiency [Unknown]
  - Visual impairment [Unknown]
  - Drug ineffective [Unknown]
